FAERS Safety Report 7717507-1 (Version None)
Quarter: 2011Q3

REPORT INFORMATION
  Report Type: 
  Country: None (occurrence: None)
  Receive Date: 20110830
  Receipt Date: 20110824
  Transmission Date: 20111222
  Serious: Yes (Hospitalization)
  Sender: FDA-Public Use
  Company Number: GB-GENZYME-CAMP-1001861

PATIENT
  Age: 62 Year
  Sex: Male
  Weight: 69 kg

DRUGS (14)
  1. CYCLOPHOSPHAMIDE [Suspect]
     Dosage: 1400 MG, UNK (CYCLE 2)
     Route: 042
     Dates: start: 20110811
  2. LANSOPRAZOLE [Concomitant]
     Indication: GASTROINTESTINAL DISORDER
     Dosage: 30 MG, QD
     Route: 048
     Dates: start: 20110731
  3. ALLOPURINOL [Concomitant]
     Indication: PROPHYLACTIC CHEMOTHERAPY
     Dosage: 300 MG, QD
     Route: 048
     Dates: start: 20110730
  4. CAMPATH [Suspect]
     Indication: T-CELL LYMPHOMA
     Dosage: CYCLE 2
     Route: 065
     Dates: start: 20110811
  5. PREDNISOLONE [Suspect]
     Dosage: 100 MG, QD (CYCLE 2)
     Route: 048
     Dates: start: 20110811
  6. VINCRISTINE [Suspect]
     Dosage: UNK
  7. HYOSCINE [Concomitant]
     Indication: NAUSEA
     Dosage: 10 MG, QD
     Route: 048
     Dates: start: 20110730
  8. DOXORUBICIN HCL [Suspect]
     Indication: T-CELL LYMPHOMA
     Dosage: 90 MG, ONCE (CYCLE 1)
     Route: 042
     Dates: start: 20110721, end: 20110721
  9. VINCRISTINE [Suspect]
     Dosage: 2 MG, UNK (CYCLE 2)
     Route: 042
     Dates: start: 20110811
  10. PREDNISOLONE [Suspect]
     Indication: T-CELL LYMPHOMA
     Dosage: 100 MG, QDX5 (CYCLE 1)
     Route: 048
     Dates: start: 20110721, end: 20110725
  11. SENNA [Concomitant]
     Indication: COELIAC DISEASE
     Dosage: 15 MG, QD
     Route: 048
     Dates: start: 20110805
  12. VINCRISTINE [Suspect]
     Indication: T-CELL LYMPHOMA
     Dosage: 2 MG, ONCE (CYCLE 1)
     Route: 042
     Dates: start: 20110721, end: 20110721
  13. CYCLOPHOSPHAMIDE [Suspect]
     Indication: T-CELL LYMPHOMA
     Dosage: 1400 MG, ONCE (CYCLE 1)
     Route: 042
     Dates: start: 20110721, end: 20110721
  14. DOXORUBICIN HCL [Suspect]
     Dosage: 90 MG, UNK (CYCLE 2)
     Route: 042
     Dates: start: 20110811

REACTIONS (1)
  - SMALL INTESTINAL OBSTRUCTION [None]
